FAERS Safety Report 23696426 (Version 2)
Quarter: 2024Q3

REPORT INFORMATION
  Report Type: Spontaneous
  Country: CN (occurrence: CN)
  Receive Date: 20240402
  Receipt Date: 20240902
  Transmission Date: 20241016
  Serious: Yes (Life-Threatening, Hospitalization, Other)
  Sender: ALKEM
  Company Number: None

PATIENT
  Age: 69 Year
  Sex: Female

DRUGS (4)
  1. MYCOPHENOLATE MOFETIL [Suspect]
     Active Substance: MYCOPHENOLATE MOFETIL
     Indication: Immunosuppressant drug therapy
     Dosage: 0.5 MILLIGRAM, BID (EVERY 12 HOUR)
     Route: 048
  2. MYCOPHENOLATE MOFETIL [Suspect]
     Active Substance: MYCOPHENOLATE MOFETIL
     Dosage: UNK (RECHALLENGE DOSE ADDED)
     Route: 048
  3. CYCLOSPORINE [Suspect]
     Active Substance: CYCLOSPORINE
     Indication: Immunosuppressant drug therapy
     Dosage: 75 MILLIGRAM, QD (EVERY 1 DAY)
     Route: 048
  4. CYCLOSPORINE [Suspect]
     Active Substance: CYCLOSPORINE
     Dosage: UNK (RECHALLENGE DOSE ADDED)
     Route: 048

REACTIONS (6)
  - Cardiac failure [Recovered/Resolved]
  - Acute respiratory distress syndrome [Recovered/Resolved]
  - Asthma [Recovered/Resolved]
  - Acute kidney injury [Recovered/Resolved]
  - Hepatic function abnormal [Recovering/Resolving]
  - COVID-19 pneumonia [Recovered/Resolved]
